FAERS Safety Report 4314796-0 (Version None)
Quarter: 2004Q1

REPORT INFORMATION
  Report Type: 
  Country: None (occurrence: None)
  Receive Date: 20040310
  Receipt Date: 20040303
  Transmission Date: 20041129
  Serious: Yes (Hospitalization)
  Sender: FDA-Public Use
  Company Number: 200411667US

PATIENT
  Age: 8 Month
  Sex: Female

DRUGS (10)
  1. LOVENOX [Suspect]
  2. HEPARIN [Concomitant]
     Dosage: DOSE: NOT PROVIDED
  3. ZANTAC [Concomitant]
     Dosage: DOSE: NOT PROVIDED
  4. ALDACTONE [Concomitant]
     Dosage: DOSE: NOT PROVIDED
  5. REGLAN [Concomitant]
     Dosage: DOSE: NOT PROVIDED
  6. GENTAMICIN [Concomitant]
     Dosage: DOSE: NOT PROVIDED
  7. VANCOMYCIN [Concomitant]
     Dosage: DOSE: NOT PROVIDED
  8. OPHTHALMOLOGICALS [Concomitant]
     Dosage: DOSE: NOT PROVIDED
  9. VIAGRA [Concomitant]
     Dosage: DOSE: NOT PROVIDED
  10. DIURIL [Concomitant]
     Dosage: DOSE: NOT PROVIDED

REACTIONS (2)
  - ENDOCARDITIS [None]
  - PULMONARY EMBOLISM [None]
